FAERS Safety Report 5602271-2 (Version None)
Quarter: 2008Q1

REPORT INFORMATION
  Report Type: 
  Country: None (occurrence: None)
  Receive Date: 20080125
  Receipt Date: 20080118
  Transmission Date: 20080703
  Serious: Yes (Hospitalization)
  Sender: FDA-Public Use
  Company Number: SE-JNJFOC-20080105073

PATIENT
  Age: 61 Year
  Sex: Female

DRUGS (7)
  1. REMICADE [Suspect]
     Indication: RHEUMATOID ARTHRITIS
     Route: 042
  2. NORMORIX [Suspect]
     Indication: HYPERTENSION
  3. NAPROXEN [Concomitant]
  4. CITODON [Concomitant]
  5. LASIX [Concomitant]
  6. FOLACIN [Concomitant]
  7. METHOTREXATE [Concomitant]

REACTIONS (2)
  - BLOOD SODIUM DECREASED [None]
  - PNEUMONIA [None]
